FAERS Safety Report 9532033 (Version 1)
Quarter: 2013Q2

REPORT INFORMATION
  Report Type: Spontaneous
  Country: FR (occurrence: None)
  Receive Date: 20130403
  Receipt Date: 20130403
  Transmission Date: 20140414
  Serious: Yes (Hospitalization)
  Sender: FDA-Public Use
  Company Number: US-2012-10367

PATIENT
  Age: 36 Year
  Sex: Male
  Weight: 67 kg

DRUGS (2)
  1. BUSULFEX [Suspect]
     Indication: ACUTE MYELOID LEUKAEMIA
     Dates: start: 20111116
  2. CYCLOPHOSPHAMIDE [Suspect]
     Indication: ACUTE MYELOID LEUKAEMIA
     Dates: start: 20111121, end: 20111122

REACTIONS (1)
  - Venoocclusive disease [None]
